FAERS Safety Report 17596804 (Version 1)
Quarter: 2020Q1

REPORT INFORMATION
  Report Type: Spontaneous
  Country: CN (occurrence: CN)
  Receive Date: 20200330
  Receipt Date: 20200330
  Transmission Date: 20200409
  Serious: Yes (Other)
  Sender: FDA-Public Use
  Company Number: CN-ROCHE-2573528

PATIENT
  Age: 67 Year
  Sex: Male

DRUGS (1)
  1. RANIBIZUMAB. [Suspect]
     Active Substance: RANIBIZUMAB
     Indication: RETINAL VEIN OCCLUSION
     Dosage: UNK
     Route: 065
     Dates: start: 20180702

REACTIONS (6)
  - Off label use [Unknown]
  - Iris disorder [Unknown]
  - Ocular hypertension [Unknown]
  - Intentional product use issue [Unknown]
  - Hyphaema [Unknown]
  - Fundoscopy abnormal [Unknown]
